FAERS Safety Report 7214617-2 (Version None)
Quarter: 2011Q1

REPORT INFORMATION
  Report Type: 
  Country: None (occurrence: None)
  Receive Date: 20110107
  Receipt Date: 20110104
  Transmission Date: 20110831
  Serious: Yes (Death, Life-Threatening, Hospitalization)
  Sender: FDA-Public Use
  Company Number: CA-SANOFI-AVENTIS-2010SA071876

PATIENT
  Age: 66 Year
  Sex: Female
  Weight: 101 kg

DRUGS (19)
  1. HYDROCHLOROTHIAZIDE [Concomitant]
     Route: 048
     Dates: start: 20080101
  2. GRANISETRON HCL [Concomitant]
     Indication: PREMEDICATION
     Route: 048
     Dates: start: 20101013
  3. GRANISETRON HCL [Concomitant]
     Route: 048
     Dates: start: 20101104
  4. BRICANYL [Concomitant]
     Route: 055
  5. TAXOTERE [Suspect]
     Indication: BREAST CANCER
     Route: 041
     Dates: start: 20101013, end: 20101013
  6. METOPROLOL [Concomitant]
     Route: 048
     Dates: start: 20100801
  7. ALBUTEROL [Concomitant]
     Route: 055
  8. ECTOSONE [Concomitant]
  9. TRASTUZUMAB [Concomitant]
     Dates: start: 20101104, end: 20101104
  10. CLOTRIMAZOLE [Concomitant]
     Dates: start: 20101001
  11. DEXAMETHASONE [Concomitant]
     Route: 048
     Dates: start: 20101104
  12. TAXOTERE [Suspect]
     Route: 041
     Dates: start: 20101104, end: 20101104
  13. TRASTUZUMAB [Concomitant]
     Indication: BREAST CANCER
     Dates: start: 20101013, end: 20101013
  14. VITAMIN D [Concomitant]
     Dosage: DOSE:1000 UNIT(S)
     Route: 048
  15. MICARDIS [Concomitant]
     Route: 048
     Dates: start: 20091001
  16. ROSUVASTATIN CALCIUM [Concomitant]
     Route: 048
     Dates: start: 20090901
  17. DEXAMETHASONE [Concomitant]
     Indication: PREMEDICATION
     Route: 048
     Dates: start: 20101013
  18. PROCHLORPERAZINE [Concomitant]
     Indication: PREMEDICATION
     Route: 048
     Dates: start: 20101013
  19. BUDESONIDE/FORMOTEROL [Concomitant]
     Route: 055
     Dates: start: 20100601

REACTIONS (2)
  - DEATH [None]
  - DYSPNOEA [None]
